FAERS Safety Report 6494235-4 (Version None)
Quarter: 2009Q4

REPORT INFORMATION
  Report Type: 
  Country: None (occurrence: None)
  Receive Date: 20091214
  Receipt Date: 20090127
  Transmission Date: 20100525
  Serious: No
  Sender: FDA-Public Use
  Company Number: US-BRISTOL-MYERS SQUIBB COMPANY-14484844

PATIENT
  Age: 26 Year
  Sex: Female

DRUGS (2)
  1. ABILIFY [Interacting]
  2. PERCOCET [Suspect]
     Indication: FIBROMYALGIA

REACTIONS (2)
  - DRUG INTERACTION [None]
  - FIBROMYALGIA [None]
